FAERS Safety Report 5990597-2 (Version None)
Quarter: 2008Q4

REPORT INFORMATION
  Report Type: 
  Country: None (occurrence: None)
  Receive Date: 20081211
  Receipt Date: 20081205
  Transmission Date: 20090506
  Serious: Yes (Hospitalization)
  Sender: FDA-Public Use
  Company Number: A0753167A

PATIENT
  Age: 74 Year
  Sex: Female
  Weight: 63.6 kg

DRUGS (9)
  1. AVANDIA [Suspect]
     Dosage: 8MG PER DAY
     Route: 048
     Dates: start: 20050629
  2. DIABETA [Concomitant]
  3. ANTIVERT [Concomitant]
  4. ARICEPT [Concomitant]
  5. ASPIRIN [Concomitant]
  6. DIOVAN [Concomitant]
  7. QUININE SULFATE [Concomitant]
  8. ZOLOFT [Concomitant]
  9. CYMBALTA [Concomitant]

REACTIONS (8)
  - CEREBROVASCULAR ACCIDENT [None]
  - FEAR [None]
  - FLUID OVERLOAD [None]
  - FLUID RETENTION [None]
  - HEART INJURY [None]
  - HEPATIC FAILURE [None]
  - LIVER INJURY [None]
  - MYOCARDIAL INFARCTION [None]
